FAERS Safety Report 9578345 (Version 1)
Quarter: 2013Q4

REPORT INFORMATION
  Report Type: Spontaneous
  Country: US (occurrence: US)
  Receive Date: 20131001
  Receipt Date: 20131001
  Transmission Date: 20140711
  Serious: No
  Sender: FDA-Public Use
  Company Number: US-AMGEN-USASP2013012581

PATIENT
  Age: 55 Year
  Sex: Female
  Weight: 57 kg

DRUGS (11)
  1. ENBREL [Suspect]
     Indication: PRODUCT USED FOR UNKNOWN INDICATION
     Dosage: 50 MG, QWK
     Route: 058
  2. ATENOLOL [Concomitant]
     Dosage: 50 MG, UNK
  3. SYNTHROID [Concomitant]
     Dosage: 88 MUG, UNK
  4. PLAQUENIL                          /00072602/ [Concomitant]
     Dosage: UNK
  5. SIMVASTATIN [Concomitant]
     Dosage: 10 MG, UNK
  6. VITAMIN D                          /00107901/ [Concomitant]
     Dosage: 1000 MG, UNK
  7. CALCIUM [Concomitant]
     Dosage: 500 MG, UNK
  8. FISH OIL [Concomitant]
     Dosage: UNK
  9. MULTIVITAMINS, PLAIN [Concomitant]
     Dosage: UNK
  10. FLONASE [Concomitant]
     Dosage: 0.05 %, UNK
  11. FLEXERIL                           /00428402/ [Concomitant]
     Dosage: 5 MG, UNK

REACTIONS (1)
  - Arthralgia [Unknown]
